FAERS Safety Report 5824143-0 (Version None)
Quarter: 2008Q3

REPORT INFORMATION
  Report Type: 
  Country: None (occurrence: None)
  Receive Date: 20080728
  Receipt Date: 20080718
  Transmission Date: 20090109
  Serious: Yes (Death)
  Sender: FDA-Public Use
  Company Number: US-ROCHE-572848

PATIENT
  Sex: Female
  Weight: 52.2 kg

DRUGS (1)
  1. CAPECITABINE [Suspect]
     Indication: COLON CANCER
     Dosage: ONE WEEK ON ONE WEEK OFF
     Route: 048
     Dates: start: 20080420

REACTIONS (1)
  - COLORECTAL CANCER METASTATIC [None]
